FAERS Safety Report 12186481 (Version 1)
Quarter: 2016Q1

REPORT INFORMATION
  Report Type: Spontaneous
  Country: US (occurrence: US)
  Receive Date: 20160317
  Receipt Date: 20160317
  Transmission Date: 20160526
  Serious: No
  Sender: FDA-Public Use
  Company Number: US-AMGEN-USASP2016032907

PATIENT
  Age: 82 Year
  Sex: Female

DRUGS (1)
  1. ENBREL [Suspect]
     Active Substance: ETANERCEPT
     Indication: RHEUMATOID ARTHRITIS
     Dosage: 50 MG/ML, EVERY WEEK
     Route: 058
     Dates: start: 20160223

REACTIONS (3)
  - Arthralgia [Unknown]
  - Injection site haemorrhage [Unknown]
  - Sciatica [Unknown]

NARRATIVE: CASE EVENT DATE: 20160314
